FAERS Safety Report 19106925 (Version 1)
Quarter: 2021Q2

REPORT INFORMATION
  Report Type: Report from Study
  Country: US (occurrence: US)
  Receive Date: 20210408
  Receipt Date: 20210408
  Transmission Date: 20210717
  Serious: No
  Sender: FDA-Public Use
  Company Number: US-AGIOS-2103US02642

PATIENT

DRUGS (1)
  1. TIBSOVO [Suspect]
     Active Substance: IVOSIDENIB
     Indication: ACUTE MYELOID LEUKAEMIA
     Dosage: 125 MILLIGRAM, QD
     Route: 048
     Dates: start: 20180820

REACTIONS (3)
  - Wrong technique in product usage process [Unknown]
  - Arthritis [Unknown]
  - Bone pain [Unknown]
